FAERS Safety Report 6497540-0 (Version None)
Quarter: 2009Q4

REPORT INFORMATION
  Report Type: 
  Country: None (occurrence: None)
  Receive Date: 20091211
  Receipt Date: 20091126
  Transmission Date: 20100525
  Serious: Yes (Death, Hospitalization)
  Sender: FDA-Public Use
  Company Number: JP-1180007

PATIENT
  Age: 70 Year
  Sex: Female

DRUGS (4)
  1. FLUORESCITE [Suspect]
     Dosage: 3 ML INTRAVENOUS BOLUS
     Route: 040
     Dates: start: 20090911, end: 20090911
  2. SANCOBA (CYANOCOBALAMIN) [Concomitant]
  3. PENFILL 30R (HUMAN MIXTARD) [Concomitant]
  4. DIOVAN [Concomitant]

REACTIONS (5)
  - ANAPHYLACTIC SHOCK [None]
  - ATRIAL FIBRILLATION [None]
  - CEREBELLAR INFARCTION [None]
  - HAEMATOMA [None]
  - HEART RATE DECREASED [None]
